FAERS Safety Report 12606317 (Version 1)
Quarter: 2016Q3

REPORT INFORMATION
  Report Type: Spontaneous
  Country: US (occurrence: None)
  Receive Date: 20160729
  Receipt Date: 20160729
  Transmission Date: 20161109
  Serious: Yes (Death)
  Sender: FDA-Public Use
  Company Number: None

PATIENT
  Age: 84 Year
  Sex: Male
  Weight: 77.4 kg

DRUGS (4)
  1. KCENTRA [Suspect]
     Active Substance: COAGULATION FACTOR IX HUMAN\COAGULATION FACTOR VII HUMAN\COAGULATION FACTOR X HUMAN\PROTEIN C\PROTEIN S HUMAN\PROTHROMBIN
     Indication: INTERNATIONAL NORMALISED RATIO INCREASED
     Route: 040
     Dates: start: 20160305, end: 20160305
  2. PHYTONADIONE. [Concomitant]
     Active Substance: PHYTONADIONE
  3. PRBCS [Concomitant]
     Active Substance: HUMAN RED BLOOD CELL
  4. KCENTRA [Suspect]
     Active Substance: COAGULATION FACTOR IX HUMAN\COAGULATION FACTOR VII HUMAN\COAGULATION FACTOR X HUMAN\PROTEIN C\PROTEIN S HUMAN\PROTHROMBIN
     Indication: GASTROINTESTINAL HAEMORRHAGE
     Route: 040
     Dates: start: 20160305, end: 20160305

REACTIONS (2)
  - Respiratory arrest [None]
  - Cerebral infarction [None]

NARRATIVE: CASE EVENT DATE: 20160306
